FAERS Safety Report 4850801-0 (Version None)
Quarter: 2005Q4

REPORT INFORMATION
  Report Type: 
  Country: None (occurrence: None)
  Receive Date: 20051208
  Receipt Date: 20051117
  Transmission Date: 20060501
  Serious: Yes (Other)
  Sender: FDA-Public Use
  Company Number: DE200511001453

PATIENT
  Age: 52 Year
  Sex: Male
  Weight: 88 kg

DRUGS (3)
  1. CYMBALTA [Suspect]
     Indication: DEPRESSION
  2. RANICUR (RANITIDINE HYDROCHLORIDE) [Concomitant]
  3. NEBILET (NEBIVILOL HYDROCHLORIDE) [Concomitant]

REACTIONS (3)
  - ALANINE AMINOTRANSFERASE INCREASED [None]
  - ASPARTATE AMINOTRANSFERASE INCREASED [None]
  - GAMMA-GLUTAMYLTRANSFERASE INCREASED [None]
